FAERS Safety Report 6460489-3 (Version None)
Quarter: 2009Q4

REPORT INFORMATION
  Report Type: 
  Country: None (occurrence: None)
  Receive Date: 20091130
  Receipt Date: 20091117
  Transmission Date: 20100525
  Serious: Yes (Other)
  Sender: FDA-Public Use
  Company Number: JP-JNJFOC-20091103385

PATIENT
  Age: 83 Year
  Sex: Female

DRUGS (6)
  1. DUROTEP MT PATCH [Suspect]
     Route: 062
     Dates: end: 20091112
  2. DUROTEP MT PATCH [Suspect]
     Route: 062
     Dates: end: 20091112
  3. DUROTEP MT PATCH [Suspect]
     Indication: RECTAL CANCER
     Route: 062
     Dates: end: 20091112
  4. OPSO [Suspect]
     Indication: DRUG USE FOR UNKNOWN INDICATION
     Route: 048
  5. TEGRETOL [Concomitant]
     Route: 048
     Dates: end: 20090928
  6. TRYPTANOL [Concomitant]
     Route: 065

REACTIONS (4)
  - HYPERKALAEMIA [None]
  - ILEUS [None]
  - INADEQUATE ANALGESIA [None]
  - SOMNOLENCE [None]
